FAERS Safety Report 9256191 (Version 1)
Quarter: 2013Q2

REPORT INFORMATION
  Report Type: Spontaneous
  Country: US (occurrence: US)
  Receive Date: 20130425
  Receipt Date: 20130425
  Transmission Date: 20140414
  Serious: No
  Sender: FDA-Public Use
  Company Number: US-AMGEN-USASP2012045027

PATIENT
  Age: 55 Year
  Sex: Female
  Weight: 100.68 kg

DRUGS (10)
  1. NEULASTA [Suspect]
     Indication: CHEMOTHERAPY
     Dosage: 6 MG, Q3WK
     Route: 058
     Dates: start: 20110722, end: 20111111
  2. ADRIAMYCIN [Concomitant]
     Dosage: 100 MG, Q3WK
     Route: 042
     Dates: start: 20110722, end: 20111021
  3. CYTOXAN [Concomitant]
     Dosage: 1000 MG, Q3WK
     Route: 042
     Dates: start: 20110722, end: 20111111
  4. TAXOTERE [Concomitant]
     Dosage: 150 MG, Q3WK
     Route: 042
     Dates: start: 20110722, end: 20111111
  5. PEPCID                             /00706001/ [Concomitant]
     Dosage: 20 MG, UNK
     Route: 042
     Dates: start: 20110722, end: 20111111
  6. EMEND                              /01627301/ [Concomitant]
     Dosage: 150 MG, UNK
     Route: 042
     Dates: start: 20110722, end: 20111111
  7. BENADRYL                           /00000402/ [Concomitant]
     Dosage: UNK
     Dates: start: 20110722, end: 20111111
  8. DECADRON                           /00016001/ [Concomitant]
     Dosage: 20 MG, UNK
     Route: 042
     Dates: start: 20110722, end: 20111111
  9. NEURONTIN [Concomitant]
  10. LYRICA [Concomitant]

REACTIONS (9)
  - Pain in extremity [Not Recovered/Not Resolved]
  - Tendonitis [Not Recovered/Not Resolved]
  - Pain [Not Recovered/Not Resolved]
  - Tenderness [Not Recovered/Not Resolved]
  - Central venous catheter removal [Recovered/Resolved]
  - Groin pain [Not Recovered/Not Resolved]
  - Hepatic enzyme increased [Unknown]
  - Arthritis [Unknown]
  - Musculoskeletal pain [Not Recovered/Not Resolved]
